FAERS Safety Report 21896631 (Version 1)
Quarter: 2023Q1

REPORT INFORMATION
  Report Type: Spontaneous
  Country: US (occurrence: US)
  Receive Date: 20230123
  Receipt Date: 20230123
  Transmission Date: 20230417
  Serious: Yes (Other)
  Sender: FDA-Public Use
  Company Number: US-MYLANLABS-2023M1005731

PATIENT
  Sex: Male

DRUGS (8)
  1. FENTANYL [Suspect]
     Active Substance: FENTANYL
     Indication: Cerebral disorder
     Dosage: 75 MICROGRAM
     Route: 065
  2. FENTANYL [Suspect]
     Active Substance: FENTANYL
     Indication: Gastrointestinal disorder
  3. PERCOCET [Concomitant]
     Active Substance: ACETAMINOPHEN\OXYCODONE HYDROCHLORIDE
     Indication: Cerebral disorder
     Dosage: 40 MILLIGRAM
     Route: 065
  4. PERCOCET [Concomitant]
     Active Substance: ACETAMINOPHEN\OXYCODONE HYDROCHLORIDE
     Indication: Gastrointestinal disorder
  5. KLONOPIN [Concomitant]
     Active Substance: CLONAZEPAM
     Indication: Cerebral disorder
     Dosage: UNK (UP TO 3 MG DAILY, BUT TOOK 1 TO 1.5 TABLETS OF KLONOPIN DAILY)
     Route: 065
  6. KLONOPIN [Concomitant]
     Active Substance: CLONAZEPAM
     Indication: Gastrointestinal disorder
  7. OXYCODONE [Concomitant]
     Active Substance: OXYCODONE
     Indication: Cerebral disorder
     Dosage: 40 MILLIGRAM
     Route: 065
  8. OXYCODONE [Concomitant]
     Active Substance: OXYCODONE
     Indication: Gastrointestinal disorder

REACTIONS (3)
  - Disease progression [Unknown]
  - Weight decreased [Unknown]
  - Drug ineffective for unapproved indication [Unknown]
